FAERS Safety Report 10092177 (Version 2)
Quarter: 2014Q2

REPORT INFORMATION
  Report Type: Spontaneous
  Country: US (occurrence: US)
  Receive Date: 20140421
  Receipt Date: 20140421
  Transmission Date: 20141212
  Serious: No
  Sender: FDA-Public Use
  Company Number: US-SANOFI-AVENTIS-2013SA016460

PATIENT
  Sex: Female

DRUGS (2)
  1. ALLEGRA [Suspect]
  2. ALLEGRA [Suspect]
     Route: 048

REACTIONS (4)
  - Feeling abnormal [Unknown]
  - Malaise [Unknown]
  - Fatigue [Unknown]
  - Incorrect dose administered [Unknown]
